FAERS Safety Report 14318439 (Version 5)
Quarter: 2018Q3

REPORT INFORMATION
  Report Type: Spontaneous
  Country: JP (occurrence: JP)
  Receive Date: 20171222
  Receipt Date: 20180802
  Transmission Date: 20181010
  Serious: Yes (Death, Life-Threatening, Other)
  Sender: FDA-Public Use
  Company Number: JP-GLAXOSMITHKLINE-JP2017JPN196614

PATIENT
  Age: 48 Year
  Sex: Female
  Weight: 54 kg

DRUGS (5)
  1. ZOVIRAX [Suspect]
     Active Substance: ACYCLOVIR
     Indication: HERPES ZOSTER
     Dosage: 400 MG, UNK
     Route: 048
     Dates: start: 20171209
  2. THYRADIN S [Concomitant]
     Active Substance: LEVOTHYROXINE SODIUM
     Indication: HYPOTHYROIDISM
     Dosage: 50 ?G, 1D
  3. ZOVIRAX [Suspect]
     Active Substance: ACYCLOVIR
     Dosage: 250 MG, QD
     Route: 041
     Dates: start: 20171210, end: 20171210
  4. ZOVIRAX [Suspect]
     Active Substance: ACYCLOVIR
     Indication: HERPES ZOSTER
     Dosage: 250 MG, QD
     Route: 041
     Dates: start: 20171207, end: 20171208
  5. PREDNISOLONE TABLETS [Concomitant]
     Indication: SYSTEMIC LUPUS ERYTHEMATOSUS
     Dosage: 5 MG, 1D

REACTIONS (11)
  - Disorganised speech [Not Recovered/Not Resolved]
  - Hepatic failure [Fatal]
  - Multiple organ dysfunction syndrome [Fatal]
  - Disorientation [Unknown]
  - Psychiatric symptom [Unknown]
  - Dyskinesia [Unknown]
  - Renal impairment [Unknown]
  - Cardio-respiratory arrest [Fatal]
  - Depressed level of consciousness [Not Recovered/Not Resolved]
  - Toxic encephalopathy [Not Recovered/Not Resolved]
  - Inappropriate schedule of drug administration [Unknown]

NARRATIVE: CASE EVENT DATE: 20171208
